FAERS Safety Report 25943134 (Version 1)
Quarter: 2025Q4

REPORT INFORMATION
  Report Type: Spontaneous
  Country: US (occurrence: US)
  Receive Date: 20251021
  Receipt Date: 20251021
  Transmission Date: 20260117
  Serious: Yes (Other)
  Sender: SHILPA MEDICARE
  Company Number: US-KOANAAP-SML-US-2025-00500

PATIENT
  Age: 62 Year
  Sex: Female

DRUGS (6)
  1. IMATINIB [Suspect]
     Active Substance: IMATINIB
     Indication: Gastrointestinal stromal tumour
  2. GEMCITABINE [Suspect]
     Active Substance: GEMCITABINE
     Indication: Gastrointestinal stromal tumour
  3. DOCETAXEL [Suspect]
     Active Substance: DOCETAXEL
     Indication: Gastrointestinal stromal tumour
  4. SUNITINIB [Suspect]
     Active Substance: SUNITINIB
     Indication: Gastrointestinal stromal tumour
  5. DOXORUBICIN [Suspect]
     Active Substance: DOXORUBICIN
     Indication: Gastrointestinal stromal tumour
  6. PAZOPANIB [Concomitant]
     Active Substance: PAZOPANIB
     Indication: Gastrointestinal stromal tumour
     Dosage: PAZOPANIB FOR SEVEN MONTHS AND IS CURRENTLY DOING WELL ON A?DAILY 400 MG MAINTENANCE DOSE OF PAZOPAN
     Route: 048

REACTIONS (6)
  - Disease progression [Unknown]
  - Drug ineffective [Unknown]
  - Therapy partial responder [Unknown]
  - Performance status decreased [Unknown]
  - Hyponatraemia [Unknown]
  - Pleural effusion [Unknown]
